FAERS Safety Report 6018908-2 (Version None)
Quarter: 2008Q4

REPORT INFORMATION
  Report Type: 
  Country: None (occurrence: None)
  Receive Date: 20081221
  Receipt Date: 20081221
  Transmission Date: 20090506
  Serious: Yes (Hospitalization)
  Sender: FDA-Public Use
  Company Number: None

PATIENT
  Sex: Male
  Weight: 82.4 kg

DRUGS (3)
  1. CYCLOPHOSPHAMIDE [Suspect]
     Dosage: 873 MG
     Dates: end: 20080820
  2. FLUDARABINE PHOSPHATE [Suspect]
     Dosage: 117 MG
     Dates: end: 20080820
  3. RITUXIMAB (MOAHC2B8 ANTI CD20, CHIMERIC) [Suspect]
     Dosage: 970 MG
     Dates: end: 20080818

REACTIONS (4)
  - CARDIAC FAILURE CONGESTIVE [None]
  - PANCYTOPENIA [None]
  - PERICARDIAL EFFUSION [None]
  - PNEUMONIA [None]
